FAERS Safety Report 13988455 (Version 2)
Quarter: 2019Q4

REPORT INFORMATION
  Report Type: Spontaneous
  Country: US (occurrence: US)
  Receive Date: 20170919
  Receipt Date: 20191018
  Transmission Date: 20200122
  Serious: Yes (Hospitalization, Other)
  Sender: FDA-Public Use
  Company Number: US-PFIZER INC-2017403023

PATIENT
  Age: 58 Year
  Sex: Male

DRUGS (16)
  1. LANSOPRAZOLE. [Concomitant]
     Active Substance: LANSOPRAZOLE
     Indication: DYSPEPSIA
     Dosage: UNK
     Dates: start: 20110103
  2. MELOXICAM. [Concomitant]
     Active Substance: MELOXICAM
     Indication: ARTHRITIS
     Dosage: UNK
     Dates: start: 20180701
  3. CLOBETASOL [Concomitant]
     Active Substance: CLOBETASOL
     Indication: PRURITUS
     Dosage: UNK
     Dates: start: 20140628
  4. ASPIRIN. [Concomitant]
     Active Substance: ASPIRIN
     Dosage: UNK
     Dates: start: 20150130
  5. CLOTRIMAZOLE AND BETAMETHASONE [Concomitant]
     Active Substance: BETAMETHASONE\CLOTRIMAZOLE
     Indication: ARTHROPOD BITE
     Dosage: UNK
     Dates: start: 20140523, end: 20140610
  6. TRIAMCINOLONE [Concomitant]
     Active Substance: TRIAMCINOLONE
     Indication: MULTIPLE ALLERGIES
     Dosage: UNK
     Dates: start: 20150313, end: 20150330
  7. VIAGRA [Suspect]
     Active Substance: SILDENAFIL CITRATE
     Indication: HYPOGONADISM
     Dosage: UNK, 06 SAMPLES
     Route: 048
     Dates: start: 20021220
  8. PREDNISOLONE. [Concomitant]
     Active Substance: PREDNISOLONE
     Indication: RHEUMATOID ARTHRITIS
     Dosage: UNK
     Dates: start: 20140521, end: 20150203
  9. DIPHENOXYLATE [Concomitant]
     Active Substance: DIPHENOXYLATE
     Indication: DIARRHOEA
     Dosage: UNK
     Dates: start: 20110523
  10. CLINDAMYCIN. [Concomitant]
     Active Substance: CLINDAMYCIN
     Indication: INFECTION
     Dosage: UNK
     Dates: start: 20140603, end: 20140803
  11. VIAGRA [Suspect]
     Active Substance: SILDENAFIL CITRATE
     Dosage: 100 MG, 2X/WEEK
     Route: 048
     Dates: start: 20050801, end: 20150306
  12. AMOXICILLIN. [Concomitant]
     Active Substance: AMOXICILLIN
     Indication: BRONCHITIS
  13. VIAGRA [Suspect]
     Active Substance: SILDENAFIL CITRATE
     Dosage: 100 MG, 2X/WEEK
     Route: 048
     Dates: start: 20021220, end: 20030131
  14. OFLOXACIN. [Concomitant]
     Active Substance: OFLOXACIN
     Indication: CATARACT
     Dosage: UNK
     Dates: start: 20150203, end: 20180103
  15. KETOROLAC [Concomitant]
     Active Substance: KETOROLAC TROMETHAMINE
     Indication: CATARACT
     Dosage: UNK
     Dates: start: 20150203, end: 20180103
  16. AMOXICILLIN. [Concomitant]
     Active Substance: AMOXICILLIN
     Indication: INFECTION
     Dosage: UNK
     Dates: end: 201807

REACTIONS (4)
  - Malignant melanoma stage III [Unknown]
  - Stress [Unknown]
  - Malignant melanoma [Unknown]
  - Anxiety [Unknown]

NARRATIVE: CASE EVENT DATE: 20090819
